FAERS Safety Report 24812829 (Version 1)
Quarter: 2025Q1

REPORT INFORMATION
  Report Type: Spontaneous
  Country: US (occurrence: US)
  Receive Date: 20250107
  Receipt Date: 20250107
  Transmission Date: 20250408
  Serious: Yes (Other)
  Sender: VIWIT PHARMACEUTICAL
  Company Number: US-VIWITPHARMA-2025VWTLIT00002

PATIENT
  Age: 72 Year
  Sex: Female

DRUGS (2)
  1. SERTRALINE [Suspect]
     Active Substance: SERTRALINE HYDROCHLORIDE
     Indication: Product used for unknown indication
     Route: 065
  2. LEVOXYL [Concomitant]
     Active Substance: LEVOTHYROXINE SODIUM
     Indication: Thyroid cancer

REACTIONS (1)
  - Multiple acyl-coenzyme A dehydrogenase deficiency [Recovering/Resolving]
